FAERS Safety Report 20146292 (Version 2)
Quarter: 2022Q1

REPORT INFORMATION
  Report Type: Spontaneous
  Country: US (occurrence: US)
  Receive Date: 20211203
  Receipt Date: 20220120
  Transmission Date: 20220423
  Serious: No
  Sender: FDA-Public Use
  Company Number: US-PFIZER INC-202101529081

PATIENT
  Age: 2 Year
  Sex: Male
  Weight: 10.43 kg

DRUGS (1)
  1. SOMATROPIN [Suspect]
     Active Substance: SOMATROPIN
     Indication: Growth hormone deficiency
     Dosage: 0.4 MG, DAILY (0.4MG SHOT EVERY NIGHT ALTERNATE LEGS IN HIS THIGH)
     Dates: start: 202110

REACTIONS (2)
  - Device issue [Unknown]
  - Liquid product physical issue [Unknown]

NARRATIVE: CASE EVENT DATE: 20211001
